FAERS Safety Report 14871241 (Version 1)
Quarter: 2018Q2

REPORT INFORMATION
  Report Type: Spontaneous
  Country: CL (occurrence: CL)
  Receive Date: 20180509
  Receipt Date: 20180509
  Transmission Date: 20180711
  Serious: Yes (Death, Other)
  Sender: FDA-Public Use
  Company Number: CL-VIIV HEALTHCARE LIMITED-CL2018GSK080459

PATIENT
  Sex: Male

DRUGS (3)
  1. ETRAVIRINE [Suspect]
     Active Substance: ETRAVIRINE
     Indication: HIV INFECTION
     Dosage: UNK
  2. TIVICAY [Suspect]
     Active Substance: DOLUTEGRAVIR SODIUM
     Indication: HIV TEST POSITIVE
     Dosage: UNK
     Dates: start: 20131024
  3. KALETRA [Suspect]
     Active Substance: LOPINAVIR\RITONAVIR
     Indication: HIV TEST POSITIVE
     Dosage: UNK

REACTIONS (2)
  - Pulmonary sepsis [Fatal]
  - Urosepsis [Fatal]

NARRATIVE: CASE EVENT DATE: 2018
